FAERS Safety Report 8381292-3 (Version None)
Quarter: 2012Q2

REPORT INFORMATION
  Report Type: 
  Country: None (occurrence: None)
  Receive Date: 20120523
  Receipt Date: 20120516
  Transmission Date: 20120825
  Serious: Yes (Other)
  Sender: FDA-Public Use
  Company Number: FR-ABBOTT-12P-056-0936202-00

PATIENT
  Sex: Male

DRUGS (3)
  1. NORVIR [Suspect]
     Indication: HIV INFECTION
     Route: 047
     Dates: start: 20050124, end: 20110702
  2. TRUVADA [Suspect]
     Indication: HIV INFECTION
     Dosage: 200/145 MG ONCE DAILY
     Route: 048
     Dates: start: 20110221, end: 20110702
  3. REYATAZ [Suspect]
     Indication: HIV INFECTION
     Route: 048
     Dates: start: 20050124, end: 20110702

REACTIONS (3)
  - RENAL COLIC [None]
  - HEPATIC STEATOSIS [None]
  - DEHYDRATION [None]
